FAERS Safety Report 19096797 (Version 1)
Quarter: 2021Q2

REPORT INFORMATION
  Report Type: Spontaneous
  Country: US (occurrence: US)
  Receive Date: 20210406
  Receipt Date: 20210406
  Transmission Date: 20210717
  Serious: Yes (Other)
  Sender: FDA-Public Use
  Company Number: US-GLAXOSMITHKLINE-US2021GSK075337

PATIENT
  Sex: Male

DRUGS (4)
  1. ZANTAC [Suspect]
     Active Substance: RANITIDINE HYDROCHLORIDE
     Indication: PEPTIC ULCER
     Dosage: UNKNOWN AT THIS TIME, QD
     Route: 065
     Dates: start: 1995, end: 2005
  2. RANITIDINE HYDROCHLORIDE. [Suspect]
     Active Substance: RANITIDINE HYDROCHLORIDE
     Indication: PEPTIC ULCER
     Dosage: UNKNOWN AT THIS TIME, QD
     Route: 065
     Dates: start: 1995, end: 2005
  3. ZANTAC [Suspect]
     Active Substance: RANITIDINE HYDROCHLORIDE
     Indication: PEPTIC ULCER
     Dosage: UNKNOWN AT THIS TIME, QD
     Route: 065
     Dates: start: 1995, end: 2005
  4. RANITIDINE HYDROCHLORIDE. [Suspect]
     Active Substance: RANITIDINE HYDROCHLORIDE
     Indication: PEPTIC ULCER
     Dosage: UNKNOWN AT THIS TIME, QD
     Route: 065
     Dates: start: 1995, end: 2005

REACTIONS (2)
  - Prostate cancer [Unknown]
  - Renal cancer [Unknown]
